FAERS Safety Report 5142369-9 (Version None)
Quarter: 2006Q4

REPORT INFORMATION
  Report Type: 
  Country: None (occurrence: None)
  Receive Date: 20061102
  Receipt Date: 20061023
  Transmission Date: 20070319
  Serious: Yes (Death)
  Sender: FDA-Public Use
  Company Number: US-GLAXOSMITHKLINE-B0443376A

PATIENT
  Age: 14 Year
  Sex: Male

DRUGS (4)
  1. LAMIVUDINE [Suspect]
     Indication: HIV INFECTION
     Route: 048
  2. ZIDOVUDINE [Suspect]
     Indication: HIV INFECTION
     Route: 048
  3. FOSAMPRENAVIR [Suspect]
     Indication: HIV INFECTION
     Route: 048
  4. STAVUDINE [Suspect]
     Indication: HIV INFECTION
     Route: 048

REACTIONS (8)
  - ABDOMINAL PAIN [None]
  - BLOOD LACTIC ACID INCREASED [None]
  - DISSEMINATED INTRAVASCULAR COAGULATION [None]
  - LACTIC ACIDOSIS [None]
  - NAUSEA [None]
  - RENAL FAILURE [None]
  - THROMBOCYTOPENIA [None]
  - VOMITING [None]
